FAERS Safety Report 8008792-X (Version None)
Quarter: 2011Q4

REPORT INFORMATION
  Report Type: 
  Country: None (occurrence: None)
  Receive Date: 20111227
  Receipt Date: 20111212
  Transmission Date: 20120403
  Serious: Yes (Hospitalization)
  Sender: FDA-Public Use
  Company Number: CA-WATSON-2011-21966

PATIENT
  Age: 19 Year
  Sex: Female

DRUGS (5)
  1. METHYLPREDNISOLONE [Suspect]
     Indication: ANGIOEDEMA
     Dosage: 80 MG, Q8H
     Route: 042
  2. HYDROXYCHLOROQUINE SULFATE [Suspect]
     Indication: ANTINUCLEAR ANTIBODY POSITIVE
     Dosage: 200 MG, BID
  3. IMMUNE GLOBULIN NOS [Suspect]
     Indication: EVIDENCE BASED TREATMENT
     Dosage: UNK
  4. PREDNISONE TAB [Suspect]
     Indication: ANGIOEDEMA
     Dosage: UNK
     Route: 048
  5. METHYLPREDNISOLONE [Suspect]
     Dosage: 125 MG, Q8H
     Route: 042

REACTIONS (7)
  - MYOPATHY [None]
  - DRUG INEFFECTIVE [None]
  - ANGIOEDEMA [None]
  - POSTERIOR REVERSIBLE ENCEPHALOPATHY SYNDROME [None]
  - CONVULSION [None]
  - HYPERGLYCAEMIA [None]
  - MOOD SWINGS [None]
